FAERS Safety Report 7281785-6 (Version None)
Quarter: 2011Q1

REPORT INFORMATION
  Report Type: 
  Country: None (occurrence: None)
  Receive Date: 20110208
  Receipt Date: 20100521
  Transmission Date: 20110831
  Serious: No
  Sender: FDA-Public Use
  Company Number: US-PFIZER INC-2010064694

PATIENT

DRUGS (2)
  1. SUNITINIB MALATE [Suspect]
  2. GLEEVEC [Suspect]

REACTIONS (1)
  - DRUG INEFFECTIVE [None]
